FAERS Safety Report 10086701 (Version 1)
Quarter: 2014Q2

REPORT INFORMATION
  Report Type: Spontaneous
  Country: JP (occurrence: JP)
  Receive Date: 20140418
  Receipt Date: 20140418
  Transmission Date: 20141212
  Serious: Yes (Other)
  Sender: FDA-Public Use
  Company Number: JP-ELI_LILLY_AND_COMPANY-JP201404003526

PATIENT
  Sex: 0

DRUGS (1)
  1. GEMZAR [Suspect]
     Indication: DUCTAL ADENOCARCINOMA OF PANCREAS
     Dosage: 800 MG/M2, UNK
     Route: 042

REACTIONS (1)
  - Gastrointestinal toxicity [Unknown]
